FAERS Safety Report 7574036-6 (Version None)
Quarter: 2011Q2

REPORT INFORMATION
  Report Type: 
  Country: None (occurrence: None)
  Receive Date: 20110627
  Receipt Date: 20110614
  Transmission Date: 20111010
  Serious: Yes (Hospitalization)
  Sender: FDA-Public Use
  Company Number: US-JNJFOC-20110610549

PATIENT
  Sex: Male
  Weight: 129.25 kg

DRUGS (7)
  1. TOPAMAX [Suspect]
     Indication: MIGRAINE
  2. TENORMIN [Concomitant]
  3. IBUPROFEN [Suspect]
     Indication: PAIN
     Route: 048
  4. SERTRALINE [Suspect]
     Indication: DEPRESSION
     Route: 048
     Dates: start: 20060101
  5. XANAX [Concomitant]
  6. TOPAMAX [Suspect]
     Indication: HEADACHE
  7. PERCOCET [Concomitant]

REACTIONS (11)
  - NECK PAIN [None]
  - EMOTIONAL DISORDER [None]
  - KIDNEY INFECTION [None]
  - MOOD ALTERED [None]
  - NIGHTMARE [None]
  - CALCULUS URETERIC [None]
  - GASTRIC PERFORATION [None]
  - HYPOAESTHESIA [None]
  - HEADACHE [None]
  - SPINAL DISORDER [None]
  - SEPSIS [None]
